FAERS Safety Report 5870296-8 (Version None)
Quarter: 2008Q3

REPORT INFORMATION
  Report Type: 
  Country: None (occurrence: None)
  Receive Date: 20080904
  Receipt Date: 20070827
  Transmission Date: 20090109
  Serious: No
  Sender: FDA-Public Use
  Company Number: US-BRISTOL-MYERS SQUIBB COMPANY-13889456

PATIENT
  Age: 45 Year
  Sex: Male
  Weight: 89 kg

DRUGS (2)
  1. DEFINITY [Suspect]
     Indication: HYPERTROPHIC CARDIOMYOPATHY
     Dates: start: 20070824, end: 20070824
  2. NON-CURRENT DRUGS [Concomitant]

REACTIONS (4)
  - HEART RATE DECREASED [None]
  - HYPERHIDROSIS [None]
  - HYPOTENSION [None]
  - MYALGIA [None]
